FAERS Safety Report 10395791 (Version 1)
Quarter: 2014Q3

REPORT INFORMATION
  Report Type: Spontaneous
  Country: US (occurrence: None)
  Receive Date: 20140815
  Receipt Date: 20140815
  Transmission Date: 20150326
  Serious: Yes (Disabling)
  Sender: FDA-Public Use
  Company Number: None

PATIENT
  Age: 61 Year
  Sex: Female
  Weight: 58.97 kg

DRUGS (1)
  1. CIPROFLAXIN [Suspect]
     Active Substance: CIPROFLOXACIN
     Indication: URINARY TRACT INFECTION
     Route: 048

REACTIONS (7)
  - Rash [None]
  - Impaired driving ability [None]
  - Urinary tract infection [None]
  - Sleep disorder [None]
  - Arthralgia [None]
  - Activities of daily living impaired [None]
  - No therapeutic response [None]

NARRATIVE: CASE EVENT DATE: 20140403
